FAERS Safety Report 25359657 (Version 1)
Quarter: 2025Q2

REPORT INFORMATION
  Report Type: Spontaneous
  Country: CN (occurrence: CN)
  Receive Date: 20250526
  Receipt Date: 20250526
  Transmission Date: 20250716
  Serious: Yes (Other)
  Sender: SANOFI AVENTIS
  Company Number: CN-SA-2025SA148350

PATIENT
  Age: 54 Year
  Sex: Female
  Weight: 63 kg

DRUGS (7)
  1. ELOXATIN [Suspect]
     Active Substance: OXALIPLATIN
     Indication: Chemotherapy
     Route: 041
     Dates: start: 20241022, end: 20241022
  2. FLUOROURACIL [Concomitant]
     Active Substance: FLUOROURACIL
     Indication: Chemotherapy
     Dates: start: 20241022, end: 20241022
  3. FLUOROURACIL [Concomitant]
     Active Substance: FLUOROURACIL
     Route: 042
     Dates: start: 20241022, end: 20241022
  4. ERBITUX [Concomitant]
     Active Substance: CETUXIMAB
     Indication: Chemotherapy
     Dates: start: 20241022, end: 20241022
  5. DEXTROSE [Concomitant]
     Active Substance: DEXTROSE MONOHYDRATE
     Indication: Chemotherapy
     Route: 041
     Dates: start: 20241022, end: 20241022
  6. DEXTROSE [Concomitant]
     Active Substance: DEXTROSE MONOHYDRATE
     Dates: start: 20241022, end: 20241022
  7. SODIUM CHLORIDE [Concomitant]
     Active Substance: SODIUM CHLORIDE
     Indication: Chemotherapy
     Dates: start: 20241022, end: 20241022

REACTIONS (6)
  - Asphyxia [Recovering/Resolving]
  - Palpitations [Recovered/Resolved]
  - Erythema [Recovered/Resolved]
  - Pruritus [Recovered/Resolved]
  - Blood pressure systolic increased [Recovering/Resolving]
  - Blood pressure diastolic decreased [Recovering/Resolving]

NARRATIVE: CASE EVENT DATE: 20241022
